FAERS Safety Report 26001098 (Version 2)
Quarter: 2025Q4

REPORT INFORMATION
  Report Type: Spontaneous
  Country: EU (occurrence: EU)
  Receive Date: 20251105
  Receipt Date: 20251119
  Transmission Date: 20260118
  Serious: Yes (Death)
  Sender: JOHNSON AND JOHNSON
  Company Number: None

PATIENT
  Age: 53 Year
  Sex: Male
  Weight: 135 kg

DRUGS (13)
  1. DARZALEX [Suspect]
     Active Substance: DARATUMUMAB
     Indication: Plasma cell myeloma
     Dosage: 1800 MG SUBCUTANEOUSLY 1X WEEKLY
     Route: 058
     Dates: start: 20250925, end: 20251023
  2. LENALIDOMIDE [Suspect]
     Active Substance: LENALIDOMIDE
     Indication: Plasma cell myeloma
     Dosage: 1 CAPS/DAY 21 DAYS IN A ROW
     Route: 048
     Dates: start: 20250925, end: 20251023
  3. DEXAMETHASONE [Suspect]
     Active Substance: DEXAMETHASONE
     Indication: Product used for unknown indication
     Dosage: 20 MG THE DAY AFTER DARATUMUMAB ADMINISTRATION
     Dates: end: 20251023
  4. BORTEZOMIB [Suspect]
     Active Substance: BORTEZOMIB
     Indication: Plasma cell myeloma
     Dosage: STRENGHT: 2,5 MG/ML?DOSE: 3 MG S.C 1X WEEKLY
     Route: 058
     Dates: start: 20250925, end: 20251023
  5. Acipan 40 MG [Concomitant]
     Indication: Product used for unknown indication
     Dosage: 1X1
  6. ANALGIN 500 MG [Concomitant]
     Indication: Product used for unknown indication
     Dosage: 3X2 TBL DAILY
  7. Daleron 1000 MG [Concomitant]
     Indication: Product used for unknown indication
     Dosage: 3X1
  8. FRAGMIN 5 000 IU (anti-Xa)/0,2 ml [Concomitant]
     Indication: Product used for unknown indication
     Dosage: STRENGHT: 5.000 I.E./0,2 ML ?DOSE:
     Route: 058
  9. Kalcijev karbonat Krka 1 G [Concomitant]
     Indication: Product used for unknown indication
     Dosage: 1X1
  10. Plivit D3 4000 I.E./ML [Concomitant]
     Indication: Product used for unknown indication
     Dosage: STRENGHT: 4000 I.E./ML?DOSE: 35 GTT 1X WEEKLY
  11. Virolex 200 MG [Concomitant]
     Indication: Product used for unknown indication
     Dosage: 2X1
  12. RAMIPRIL [Concomitant]
     Active Substance: RAMIPRIL
     Indication: Hypertension
  13. AMLODIPINE BESYLATE [Concomitant]
     Active Substance: AMLODIPINE BESYLATE
     Indication: Hypertension

REACTIONS (1)
  - Sudden cardiac death [Fatal]

NARRATIVE: CASE EVENT DATE: 20251024
